FAERS Safety Report 17495644 (Version 4)
Quarter: 2020Q3

REPORT INFORMATION
  Report Type: Spontaneous
  Country: US (occurrence: US)
  Receive Date: 20200303
  Receipt Date: 20200821
  Transmission Date: 20201102
  Serious: Yes (Other)
  Sender: FDA-Public Use
  Company Number: US-009507513-2002USA009595

PATIENT
  Age: 29 Year
  Sex: Female
  Weight: 136.51 kg

DRUGS (6)
  1. NEXPLANON [Suspect]
     Active Substance: ETONOGESTREL
     Indication: CONTRACEPTION
     Dosage: 1 ROD IN LEFT ARM
     Route: 059
     Dates: start: 20170324
  2. NEXPLANON [Suspect]
     Active Substance: ETONOGESTREL
     Dosage: 1 ROD, ON INNER RIGHT ARM, 9 CM ABOVE HEAD OF HUMERUS (ELBOW)
     Route: 059
     Dates: start: 20200217
  3. MELATONIN [Concomitant]
     Active Substance: MELATONIN
     Dosage: 0.5?2 TABLETS (2.5?10 MG TOTAL) BY MOUTH NIGHTLY AS NEEDED
     Route: 048
  4. TOPAMAX [Concomitant]
     Active Substance: TOPIRAMATE
     Dosage: UNK
     Route: 048
     Dates: start: 202002
  5. TOPAMAX [Concomitant]
     Active Substance: TOPIRAMATE
     Dosage: 1 TABLET (50 MG TOTAL) BY MOUTH TWO TIMES DAILY
     Route: 048
     Dates: start: 20200221
  6. WELLBUTRIN XL [Concomitant]
     Active Substance: BUPROPION HYDROCHLORIDE
     Dosage: 1 TABLET (300 MG) BY MOUTH EVERY MORNING
     Route: 048

REACTIONS (10)
  - Complication of device removal [Not Recovered/Not Resolved]
  - Device issue [Not Recovered/Not Resolved]
  - Implant site inflammation [Recovered/Resolved]
  - Implant site pruritus [Recovered/Resolved]
  - Pharyngitis [Unknown]
  - Device breakage [Not Recovered/Not Resolved]
  - Overdose [Unknown]
  - Implant site pruritus [Recovered/Resolved]
  - Implant site inflammation [Recovered/Resolved]
  - Incorrect product administration duration [Unknown]

NARRATIVE: CASE EVENT DATE: 2017
